FAERS Safety Report 16945885 (Version 11)
Quarter: 2020Q2

REPORT INFORMATION
  Report Type: Report from Study
  Country: BR (occurrence: BR)
  Receive Date: 20191022
  Receipt Date: 20200406
  Transmission Date: 20200713
  Serious: Yes (Life-Threatening, Hospitalization, Disabling)
  Sender: FDA-Public Use
  Company Number: BR-ROCHE-2430912

PATIENT
  Age: 53 Year
  Sex: Female
  Weight: 64.05 kg

DRUGS (152)
  1. DIPYRONE [Concomitant]
     Active Substance: DIPYRONE
     Route: 048
     Dates: start: 20190821
  2. DIPYRONE [Concomitant]
     Active Substance: DIPYRONE
     Route: 042
     Dates: start: 20191215, end: 20191215
  3. ROCEFIN [Concomitant]
     Active Substance: CEFTRIAXONE SODIUM
     Route: 042
     Dates: start: 20190828, end: 20190828
  4. POTASSIUM [Concomitant]
     Active Substance: POTASSIUM
     Route: 042
     Dates: start: 20191103, end: 20191103
  5. FUROSEMIDE. [Concomitant]
     Active Substance: FUROSEMIDE
     Route: 042
     Dates: start: 20191018, end: 20191023
  6. OMEPRAZOLE. [Concomitant]
     Active Substance: OMEPRAZOLE
     Route: 042
     Dates: start: 20191220, end: 20191220
  7. LUFTAL [SIMETICONE] [Concomitant]
     Route: 048
     Dates: start: 20191017, end: 20191019
  8. TEICOPLANIN [Concomitant]
     Active Substance: TEICOPLANIN
     Route: 042
     Dates: start: 20191020, end: 20191022
  9. TRAMADOL HYDROCHLORIDE. [Concomitant]
     Active Substance: TRAMADOL HYDROCHLORIDE
     Route: 042
     Dates: start: 20191001, end: 20191004
  10. CERNE 12 [Concomitant]
     Active Substance: VITAMINS
     Route: 042
     Dates: start: 20200213, end: 20200218
  11. DIPYRONE [Concomitant]
     Active Substance: DIPYRONE
     Route: 042
     Dates: start: 20191001, end: 20191011
  12. DIPYRONE [Concomitant]
     Active Substance: DIPYRONE
     Route: 042
     Dates: start: 20191013, end: 20191025
  13. OMEPRAZOLE. [Concomitant]
     Active Substance: OMEPRAZOLE
     Route: 042
     Dates: start: 20191220, end: 20191220
  14. BUDESONIDE. [Concomitant]
     Active Substance: BUDESONIDE
     Route: 045
     Dates: start: 20191128, end: 20191129
  15. OLIG TRAT [Concomitant]
     Route: 042
     Dates: start: 20191219, end: 20191219
  16. MORPHINE [Concomitant]
     Active Substance: MORPHINE
     Route: 042
     Dates: start: 20191004, end: 20191006
  17. SCOPOLAMINE BUTYLBROMIDE [Concomitant]
     Active Substance: SCOPOLAMINE
     Route: 042
     Dates: start: 20200215, end: 20200215
  18. CEFTRIAXONE. [Concomitant]
     Active Substance: CEFTRIAXONE
     Route: 042
     Dates: start: 20191001, end: 20191006
  19. FUROSEMIDE. [Concomitant]
     Active Substance: FUROSEMIDE
     Route: 042
     Dates: start: 20191024, end: 20191024
  20. NICOTINE. [Concomitant]
     Active Substance: NICOTINE
     Dosage: PATCH
     Route: 065
     Dates: start: 20191112, end: 20191121
  21. NYSTATIN. [Concomitant]
     Active Substance: NYSTATIN
     Dosage: 25000 U PV (PER VAGINA)
     Route: 067
     Dates: start: 20191029, end: 20191201
  22. OMEPRAZOLE. [Concomitant]
     Active Substance: OMEPRAZOLE
     Route: 042
     Dates: start: 20191002, end: 20191219
  23. LUFTAL [SIMETICONE] [Concomitant]
     Route: 048
     Dates: start: 20191109, end: 20191220
  24. TEICOPLANIN [Concomitant]
     Active Substance: TEICOPLANIN
     Route: 042
     Dates: start: 20191031, end: 20191031
  25. TEICOPLANIN [Concomitant]
     Active Substance: TEICOPLANIN
     Route: 042
     Dates: start: 20191023, end: 20191029
  26. TEICOPLANIN [Concomitant]
     Active Substance: TEICOPLANIN
     Route: 042
     Dates: start: 20191101, end: 20191107
  27. PREDNISONE. [Concomitant]
     Active Substance: PREDNISONE
     Route: 048
     Dates: start: 20191219
  28. ZOLPIDEM [Concomitant]
     Active Substance: ZOLPIDEM TARTRATE
     Route: 048
     Dates: start: 20191016, end: 20191020
  29. OLIG TRAT [Concomitant]
     Route: 042
     Dates: start: 20191005, end: 20191018
  30. LOSEC [Concomitant]
     Active Substance: OMEPRAZOLE
     Route: 048
     Dates: start: 20200212, end: 20200227
  31. DIPYRONE [Concomitant]
     Active Substance: DIPYRONE
     Route: 042
     Dates: start: 20191027, end: 20191027
  32. METHYLPREDNISOLONE. [Concomitant]
     Active Substance: METHYLPREDNISOLONE
     Route: 065
     Dates: start: 20191005, end: 20191005
  33. ALPRAZOLAM. [Concomitant]
     Active Substance: ALPRAZOLAM
     Route: 048
     Dates: start: 20191029, end: 20191111
  34. GLYCERINE [Concomitant]
     Active Substance: GLYCERIN
     Route: 054
     Dates: start: 20191008, end: 20191008
  35. EMAMA [Concomitant]
     Active Substance: .ALPHA.-TOCOPHEROL ACETATE
     Route: 061
     Dates: start: 20191027, end: 20191220
  36. OLIMEL [Concomitant]
     Active Substance: AMINO ACIDS\DEXTROSE\SOYBEAN OIL
     Route: 042
     Dates: start: 20191019, end: 20191019
  37. LUFTAL [SIMETICONE] [Concomitant]
     Route: 048
     Dates: start: 20191016, end: 20191017
  38. CERNE 12 [Concomitant]
     Active Substance: VITAMINS
     Route: 042
     Dates: start: 20200219
  39. BROMAZEPAM [Concomitant]
     Active Substance: BROMAZEPAM
     Route: 048
     Dates: start: 20191216, end: 20191219
  40. MAXIDRATE [Concomitant]
     Route: 045
     Dates: start: 20191214, end: 20191215
  41. ALLEGRA [Concomitant]
     Active Substance: FEXOFENADINE HYDROCHLORIDE
     Route: 048
     Dates: start: 20191129, end: 20191129
  42. OLIG TRAT [Concomitant]
     Route: 042
     Dates: start: 20191029, end: 20191202
  43. DIFENIDRIN [Concomitant]
     Active Substance: DIPHENHYDRAMINE
     Route: 042
     Dates: start: 20200106, end: 20200106
  44. HIDRION [Concomitant]
     Active Substance: FUROSEMIDE\POTASSIUM CHLORIDE
     Route: 048
     Dates: start: 20200211, end: 20200212
  45. NOVALGINA [Concomitant]
     Active Substance: METAMIZOLE SODIUM
     Route: 042
     Dates: start: 20200227, end: 20200227
  46. DIPYRONE [Concomitant]
     Active Substance: DIPYRONE
     Route: 042
     Dates: start: 20191001, end: 20191011
  47. CEFUROXIME. [Concomitant]
     Active Substance: CEFUROXIME
     Route: 048
     Dates: start: 20190828, end: 20190906
  48. METHYLPREDNISOLONE. [Concomitant]
     Active Substance: METHYLPREDNISOLONE
     Route: 042
     Dates: start: 20191018, end: 20191024
  49. DRAMAMINE [Concomitant]
     Active Substance: DIMENHYDRINATE
     Route: 042
     Dates: start: 20191022, end: 20191022
  50. FUROSEMIDE. [Concomitant]
     Active Substance: FUROSEMIDE
     Route: 042
     Dates: start: 20191016, end: 20191018
  51. OLIMEL [Concomitant]
     Active Substance: AMINO ACIDS\DEXTROSE\SOYBEAN OIL
     Route: 042
     Dates: start: 20191005, end: 20191006
  52. OLIMEL [Concomitant]
     Active Substance: AMINO ACIDS\DEXTROSE\SOYBEAN OIL
     Route: 042
     Dates: start: 20191009, end: 20191015
  53. OLIMEL [Concomitant]
     Active Substance: AMINO ACIDS\DEXTROSE\SOYBEAN OIL
     Route: 042
     Dates: start: 20191218, end: 20191218
  54. POTASSIUM THIOCYANATE [Concomitant]
     Active Substance: POTASSIUM THIOCYANATE
     Route: 048
     Dates: start: 20191007, end: 20191008
  55. DIPYRONE [Concomitant]
     Active Substance: DIPYRONE
     Route: 042
     Dates: start: 20191029, end: 20191030
  56. PREGALIN [Concomitant]
     Route: 048
     Dates: start: 20191109, end: 20191109
  57. POTASSIUM CHLORIDE. [Concomitant]
     Active Substance: POTASSIUM CHLORIDE
     Route: 048
     Dates: start: 20191016, end: 20191019
  58. FLUCONAZOLE. [Concomitant]
     Active Substance: FLUCONAZOLE
     Route: 042
     Dates: start: 20191129, end: 20191129
  59. GLYCERIN [GLYCEROL] [Concomitant]
     Route: 054
     Dates: start: 20191207, end: 20191208
  60. MORPHINE [Concomitant]
     Active Substance: MORPHINE
     Route: 042
     Dates: start: 20191016, end: 20191018
  61. NOVALGINA [Concomitant]
     Active Substance: METAMIZOLE SODIUM
     Route: 042
     Dates: start: 20200220, end: 20200220
  62. DIPYRONE [Concomitant]
     Active Substance: DIPYRONE
     Route: 042
     Dates: start: 20191029, end: 20191030
  63. SODIUM BICARBONATE. [Concomitant]
     Active Substance: SODIUM BICARBONATE
     Route: 042
     Dates: start: 20191002, end: 20191002
  64. SCOPOLAMINE BUTYLBROMIDE [Concomitant]
     Active Substance: SCOPOLAMINE
     Route: 042
     Dates: start: 20191021, end: 20191022
  65. SCOPOLAMINE BUTYLBROMIDE [Concomitant]
     Active Substance: SCOPOLAMINE
     Route: 042
     Dates: start: 20191215, end: 20191215
  66. BROMOPRIDE [Concomitant]
     Active Substance: BROMOPRIDE
     Route: 065
     Dates: start: 20191007, end: 20191219
  67. DRAMAMINE [Concomitant]
     Active Substance: DIMENHYDRINATE
     Route: 042
     Dates: start: 20200227, end: 20200227
  68. ERTAPENEM. [Concomitant]
     Active Substance: ERTAPENEM SODIUM
     Route: 042
     Dates: start: 20191006, end: 20191013
  69. FUROSEMIDE. [Concomitant]
     Active Substance: FUROSEMIDE
     Route: 042
     Dates: start: 20191025, end: 20191105
  70. FUROSEMIDE. [Concomitant]
     Active Substance: FUROSEMIDE
     Route: 042
     Dates: start: 20191106, end: 20191125
  71. BROMAZEPAM [Concomitant]
     Active Substance: BROMAZEPAM
     Route: 048
     Dates: start: 20191112, end: 20191220
  72. MEROPENEM. [Concomitant]
     Active Substance: MEROPENEM
     Route: 042
     Dates: start: 20191031, end: 20191107
  73. OLIMEL [Concomitant]
     Active Substance: AMINO ACIDS\DEXTROSE\SOYBEAN OIL
     Route: 042
     Dates: start: 20191007, end: 20191009
  74. LUFTAL [SIMETICONE] [Concomitant]
     Route: 048
     Dates: start: 20191220
  75. B1 VITAMIN [Concomitant]
     Route: 042
     Dates: start: 20191005, end: 20191010
  76. B1 VITAMIN [Concomitant]
     Route: 042
     Dates: start: 20191011, end: 20191014
  77. DOMPERIDONE [Concomitant]
     Active Substance: DOMPERIDONE
     Route: 048
     Dates: start: 20191220
  78. BENALET [Concomitant]
     Active Substance: AMMONIUM CHLORIDE\DIPHENHYDRAMINE HYDROCHLORIDE\SODIUM CITRATE
     Route: 048
     Dates: start: 20191110, end: 20191111
  79. CIPROFLOXACIN. [Concomitant]
     Active Substance: CIPROFLOXACIN
     Route: 042
     Dates: start: 20191203, end: 20191210
  80. POTASSIUM CHLORIDE. [Concomitant]
     Active Substance: POTASSIUM CHLORIDE
     Route: 048
     Dates: start: 20200211, end: 20200212
  81. GLYCERIN [GLYCEROL] [Concomitant]
     Route: 054
     Dates: start: 20191102, end: 20191106
  82. GLYCERIN [GLYCEROL] [Concomitant]
     Route: 054
     Dates: start: 20191210, end: 20191211
  83. FAMOTIDINE. [Concomitant]
     Active Substance: FAMOTIDINE
     Route: 048
     Dates: start: 20200127, end: 20200127
  84. FAMOTIDINA [Concomitant]
     Route: 048
     Dates: start: 20200106, end: 20200106
  85. CLEXANE [Concomitant]
     Active Substance: ENOXAPARIN SODIUM
     Route: 058
     Dates: start: 20200214, end: 20200218
  86. METICORTEN [Concomitant]
     Active Substance: PREDNISONE
     Route: 048
     Dates: start: 20200221, end: 20200221
  87. METHYLPREDNISOLONE. [Concomitant]
     Active Substance: METHYLPREDNISOLONE
     Route: 042
     Dates: start: 20191215, end: 20191217
  88. SODIUM CHLORIDE. [Concomitant]
     Active Substance: SODIUM CHLORIDE
     Route: 042
     Dates: start: 20191001, end: 20191002
  89. SODIUM CHLORIDE. [Concomitant]
     Active Substance: SODIUM CHLORIDE
     Route: 042
     Dates: start: 20191201, end: 20191201
  90. POTASSIUM [Concomitant]
     Active Substance: POTASSIUM
     Route: 042
     Dates: start: 20191020, end: 20191020
  91. SCOPOLAMINE BUTYLBROMIDE [Concomitant]
     Active Substance: SCOPOLAMINE
     Dosage: 1 TABLET
     Route: 048
     Dates: start: 20190920, end: 20190925
  92. BENALET [Concomitant]
     Active Substance: AMMONIUM CHLORIDE\DIPHENHYDRAMINE HYDROCHLORIDE\SODIUM CITRATE
     Dosage: 1 TABLET
     Route: 048
     Dates: start: 20191108, end: 20191109
  93. BENALET [Concomitant]
     Active Substance: AMMONIUM CHLORIDE\DIPHENHYDRAMINE HYDROCHLORIDE\SODIUM CITRATE
     Dosage: 1 TABLET
     Route: 048
     Dates: start: 20191110, end: 20191111
  94. DRAMAMINE [Concomitant]
     Active Substance: DIMENHYDRINATE
     Route: 042
     Dates: start: 20191021, end: 20191021
  95. DIPYRONE [Concomitant]
     Active Substance: DIPYRONE
     Route: 042
     Dates: start: 20191001, end: 20191011
  96. IVERMECTIN. [Concomitant]
     Active Substance: IVERMECTIN
     Route: 048
     Dates: start: 20191003, end: 20191005
  97. NICOTINE. [Concomitant]
     Active Substance: NICOTINE
     Dosage: PATCH
     Route: 061
     Dates: start: 20191123, end: 20191219
  98. MEROPENEM. [Concomitant]
     Active Substance: MEROPENEM
     Route: 042
     Dates: start: 20191201, end: 20191203
  99. OLIMEL [Concomitant]
     Active Substance: AMINO ACIDS\DEXTROSE\SOYBEAN OIL
     Route: 042
     Dates: start: 20191017, end: 20191019
  100. OMEPRAZOLE. [Concomitant]
     Active Substance: OMEPRAZOLE
     Route: 048
     Dates: start: 20191220
  101. TEICOPLANIN [Concomitant]
     Active Substance: TEICOPLANIN
     Route: 042
     Dates: start: 20191130, end: 20191203
  102. ALPRAZOLAM. [Concomitant]
     Active Substance: ALPRAZOLAM
     Route: 048
     Dates: start: 20191029, end: 20191111
  103. DIPYRONE [Concomitant]
     Active Substance: DIPYRONE
     Route: 042
     Dates: start: 20191027, end: 20191027
  104. DIPYRONE [Concomitant]
     Active Substance: DIPYRONE
     Route: 042
     Dates: start: 20191215, end: 20191215
  105. GLYCERIN [GLYCEROL] [Concomitant]
     Route: 054
     Dates: start: 20191020, end: 20191020
  106. GLYCERIN [GLYCEROL] [Concomitant]
     Route: 054
     Dates: start: 20191213, end: 20191219
  107. PLASIL [METOCLOPRAMIDE] [Concomitant]
     Route: 042
     Dates: start: 20191101, end: 20191102
  108. PLASIL [METOCLOPRAMIDE] [Concomitant]
     Route: 042
     Dates: start: 20191103, end: 20191130
  109. METRONIDAZOLE. [Concomitant]
     Active Substance: METRONIDAZOLE
     Route: 042
     Dates: start: 20191001, end: 20191003
  110. SANDOSTATINA [OCTREOTIDE] [Concomitant]
     Active Substance: OCTREOTIDE
     Route: 042
     Dates: start: 20191203, end: 20191210
  111. DIPYRONE [Concomitant]
     Active Substance: DIPYRONE
     Route: 042
     Dates: start: 20191130, end: 20191130
  112. POTASSIUM [Concomitant]
     Active Substance: POTASSIUM
     Route: 042
     Dates: start: 20191021, end: 20191022
  113. POTASSIUM [Concomitant]
     Active Substance: POTASSIUM
     Route: 042
     Dates: start: 20191014, end: 20191014
  114. ALPRAZOLAM. [Concomitant]
     Active Substance: ALPRAZOLAM
     Route: 065
     Dates: start: 20191021, end: 20191111
  115. SCOPOLAMINE BUTYLBROMIDE [Concomitant]
     Active Substance: SCOPOLAMINE
     Route: 065
     Dates: start: 20191016, end: 20191016
  116. ENOXAPARIN [Concomitant]
     Active Substance: ENOXAPARIN
     Route: 058
     Dates: start: 20191007, end: 20191027
  117. SPIRONOLACTONE. [Concomitant]
     Active Substance: SPIRONOLACTONE
     Route: 048
     Dates: start: 20191018, end: 20191019
  118. FUROSEMIDE. [Concomitant]
     Active Substance: FUROSEMIDE
     Route: 042
     Dates: start: 20191012, end: 20191016
  119. INFLIXIMAB [Concomitant]
     Active Substance: INFLIXIMAB
     Route: 042
     Dates: start: 20191213, end: 20191213
  120. INFLIXIMAB [Concomitant]
     Active Substance: INFLIXIMAB
     Route: 042
     Dates: start: 20200106, end: 20200106
  121. INFLIXIMAB [Concomitant]
     Active Substance: INFLIXIMAB
     Route: 042
     Dates: start: 20200127, end: 20200127
  122. MEROPENEM. [Concomitant]
     Active Substance: MEROPENEM
     Route: 042
     Dates: start: 20191014, end: 20191028
  123. OLIMEL [Concomitant]
     Active Substance: AMINO ACIDS\DEXTROSE\SOYBEAN OIL
     Route: 042
     Dates: start: 20191029, end: 20191031
  124. ONDASETRON [ONDANSETRON] [Concomitant]
     Route: 042
     Dates: start: 20191003, end: 20191003
  125. ONDASETRON [ONDANSETRON] [Concomitant]
     Route: 042
     Dates: start: 20191016, end: 20191016
  126. PREGABALIN. [Concomitant]
     Active Substance: PREGABALIN
     Route: 042
     Dates: start: 20191022, end: 20191107
  127. CERNE 12 [Concomitant]
     Active Substance: VITAMINS
     Route: 042
     Dates: start: 20191005, end: 20191031
  128. DIPYRONE [Concomitant]
     Active Substance: DIPYRONE
     Route: 042
     Dates: start: 20191130, end: 20191130
  129. OMEPRAZOLE. [Concomitant]
     Active Substance: OMEPRAZOLE
     Route: 042
     Dates: start: 20191016, end: 20191019
  130. POTASSIUM CHLORIDE. [Concomitant]
     Active Substance: POTASSIUM CHLORIDE
     Route: 048
     Dates: start: 20191219, end: 20191220
  131. MORPHINE [Concomitant]
     Active Substance: MORPHINE
     Route: 042
     Dates: start: 20191010, end: 20191010
  132. DIFENIDRIN [Concomitant]
     Active Substance: DIPHENHYDRAMINE
     Route: 042
     Dates: start: 20200127, end: 20200127
  133. CLEXANE [Concomitant]
     Active Substance: ENOXAPARIN SODIUM
     Route: 058
     Dates: start: 20200220
  134. ATEZOLIZUMAB. [Suspect]
     Active Substance: ATEZOLIZUMAB
     Indication: RENAL CELL CARCINOMA
     Dosage: DATE OF MOST RECENT DOSE OF ATEZOLIZUMAB (1200 MG) PRIOR TO SAE ONSET 16/SEP/2019?START TIME OF MOST
     Route: 042
     Dates: start: 20181026
  135. DIPYRONE [Concomitant]
     Active Substance: DIPYRONE
     Route: 042
     Dates: start: 20191013, end: 20191025
  136. CHLORPHENAMINE MALEATE;PARACETAMOL;PHENYLEPHRINE HYDROCHLORIDE [Concomitant]
     Route: 048
     Dates: start: 20190826, end: 20190827
  137. BROMOPRIDE [Concomitant]
     Active Substance: BROMOPRIDE
     Route: 042
     Dates: start: 20200224, end: 20200225
  138. BENALET [Concomitant]
     Active Substance: AMMONIUM CHLORIDE\DIPHENHYDRAMINE HYDROCHLORIDE\SODIUM CITRATE
     Dosage: 1 TABLET
     Route: 048
     Dates: start: 20191026, end: 20191026
  139. DRAMAMINE [Concomitant]
     Active Substance: DIMENHYDRINATE
     Route: 042
     Dates: start: 20191030, end: 20191101
  140. DRAMAMINE [Concomitant]
     Active Substance: DIMENHYDRINATE
     Route: 042
     Dates: start: 20191109, end: 20191110
  141. BROMAZEPAM [Concomitant]
     Active Substance: BROMAZEPAM
     Route: 048
     Dates: start: 20191216, end: 20191219
  142. NEOSTIGMINE. [Concomitant]
     Active Substance: NEOSTIGMINE METHYLSULFATE
     Route: 042
     Dates: start: 20191021, end: 20191109
  143. NYSTATIN. [Concomitant]
     Active Substance: NYSTATIN
     Dosage: 25000 U PV (PER VAGINA)
     Route: 067
     Dates: start: 20200219, end: 20200227
  144. OLIMEL [Concomitant]
     Active Substance: AMINO ACIDS\DEXTROSE\SOYBEAN OIL
     Route: 042
     Dates: start: 20191201, end: 20191201
  145. OLIMEL [Concomitant]
     Active Substance: AMINO ACIDS\DEXTROSE\SOYBEAN OIL
     Route: 042
     Dates: start: 20200211, end: 20200212
  146. OMEPRAZOLE. [Concomitant]
     Active Substance: OMEPRAZOLE
     Route: 042
     Dates: start: 20191016, end: 20191019
  147. FLORATIL [SACCHAROMYCES BOULARDII] [Concomitant]
     Route: 048
     Dates: start: 20191013, end: 20191015
  148. CERNE 12 [Concomitant]
     Active Substance: VITAMINS
     Route: 042
     Dates: start: 20200212, end: 20200212
  149. RINGER LACTATED [Concomitant]
     Route: 042
     Dates: start: 20191201, end: 20191201
  150. UBIQUINONA [Concomitant]
     Route: 042
     Dates: start: 20191203, end: 20191206
  151. UBIQUINONA [Concomitant]
     Route: 042
     Dates: start: 20191208, end: 20191218
  152. MUVINLAX [Concomitant]
     Active Substance: ELECTROLYTES NOS\POLYETHYLENE GLYCOL 3350
     Route: 048
     Dates: start: 20200218, end: 20200219

REACTIONS (2)
  - Intestinal obstruction [Recovered/Resolved]
  - Colitis [Recovering/Resolving]

NARRATIVE: CASE EVENT DATE: 20190918
